FAERS Safety Report 20879281 (Version 3)
Quarter: 2022Q3

REPORT INFORMATION
  Report Type: Other
  Country: US (occurrence: US)
  Receive Date: 20220526
  Receipt Date: 20220726
  Transmission Date: 20221026
  Serious: Yes (Other)
  Sender: FDA-Public Use
  Company Number: US-MAYNE PHARMA-2022MYN000310

PATIENT

DRUGS (13)
  1. CLOZAPINE [Suspect]
     Active Substance: CLOZAPINE
     Indication: Schizoaffective disorder bipolar type
     Dosage: 25 MG HS
     Route: 048
     Dates: start: 20220419, end: 20220429
  2. CLOZAPINE [Suspect]
     Active Substance: CLOZAPINE
     Dosage: 50 MG HS
     Route: 048
     Dates: start: 20220429, end: 20220512
  3. CLOZAPINE [Suspect]
     Active Substance: CLOZAPINE
     Dosage: 100 MG HS
     Route: 048
     Dates: start: 20220512, end: 20220517
  4. CLOZAPINE [Suspect]
     Active Substance: CLOZAPINE
     Dosage: CLZ LEVEL=107  (N=200-700NG/ML
     Route: 048
     Dates: start: 20220517, end: 20220601
  5. CLOZAPINE [Suspect]
     Active Substance: CLOZAPINE
     Dosage: 200 MG HS
     Route: 048
     Dates: start: 20220601
  6. HALOPERIDOL DECAN [Concomitant]
     Dosage: 100 MG
  7. FLUPHENAZINE DECAN [Concomitant]
     Dosage: 100 MG EVERY 2 WEEKS
     Route: 030
  8. ABILIFY [Concomitant]
     Active Substance: ARIPIPRAZOLE
     Dosage: 15 MG NOON
  9. BENZTROPINE [Concomitant]
     Active Substance: BENZTROPINE
     Dosage: 0.5 MG NOON AND HS
  10. CLONIDINE [Concomitant]
     Active Substance: CLONIDINE
     Dosage: 0.1 MG
  11. GABAPENTIN [Suspect]
     Active Substance: GABAPENTIN
     Dosage: 600 MG, QID
  12. OXCARBAZEPINE [Suspect]
     Active Substance: OXCARBAZEPINE
     Dosage: 300 MG NOON AND HS
  13. KLONOPIN [Concomitant]
     Active Substance: CLONAZEPAM

REACTIONS (2)
  - Neutropenia [Recovered/Resolved]
  - Neutropenia [Recovered/Resolved]

NARRATIVE: CASE EVENT DATE: 20220510
